FAERS Safety Report 7287535-1 (Version None)
Quarter: 2011Q1

REPORT INFORMATION
  Report Type: 
  Country: None (occurrence: None)
  Receive Date: 20110211
  Receipt Date: 20110201
  Transmission Date: 20110831
  Serious: Yes (Hospitalization, Other)
  Sender: FDA-Public Use
  Company Number: CZ-NOVOPROD-322641

PATIENT
  Sex: Female
  Weight: 68 kg

DRUGS (4)
  1. LEVEMIR [Suspect]
     Indication: TYPE 1 DIABETES MELLITUS
     Dosage: 74 IU, QD
     Route: 058
     Dates: start: 20070101
  2. HUMALOG [Concomitant]
     Dosage: 100 IU, QD
     Route: 058
     Dates: start: 20020101
  3. METHYLDOPA [Concomitant]
     Indication: HYPERTENSION
     Dosage: 3 X 2
     Dates: start: 20090701
  4. AMLODIPINE BESYLATE [Concomitant]
     Indication: HYPERTENSION
     Dosage: 2 X 1
     Route: 048
     Dates: start: 20090701

REACTIONS (4)
  - GESTATIONAL HYPERTENSION [None]
  - CONDITION AGGRAVATED [None]
  - PROTEINURIA [None]
  - DRUG EXPOSURE DURING PREGNANCY [None]
